FAERS Safety Report 10705828 (Version 1)
Quarter: 2015Q1

REPORT INFORMATION
  Report Type: Spontaneous
  Country: US (occurrence: US)
  Receive Date: 20150112
  Receipt Date: 20150112
  Transmission Date: 20150721
  Serious: No
  Sender: FDA-Public Use
  Company Number: US-BRISTOL-MYERS SQUIBB COMPANY-BMS-2014-005895

PATIENT
  Sex: Female

DRUGS (3)
  1. INSULIN [Concomitant]
     Active Substance: INSULIN NOS
     Indication: DIABETES MELLITUS
     Route: 065
  2. STATIN                             /00036501/ [Concomitant]
     Active Substance: NYSTATIN
     Indication: BLOOD PRESSURE
     Route: 065
  3. SYMLIN [Suspect]
     Active Substance: PRAMLINTIDE ACETATE
     Indication: TYPE 1 DIABETES MELLITUS
     Dosage: 60 ?G, UNK
     Route: 058

REACTIONS (1)
  - Drug prescribing error [Unknown]
